FAERS Safety Report 5669352-9 (Version None)
Quarter: 2008Q1

REPORT INFORMATION
  Report Type: 
  Country: None (occurrence: None)
  Receive Date: 20080317
  Receipt Date: 20080306
  Transmission Date: 20080703
  Serious: Yes (Hospitalization, Other)
  Sender: FDA-Public Use
  Company Number: US-MERCK-0703USA04795

PATIENT
  Age: 28 Year
  Sex: Male
  Weight: 90 kg

DRUGS (3)
  1. FOSAMAX [Suspect]
     Indication: OSTEOPOROSIS
     Route: 048
     Dates: start: 20040101
  2. MESTINON [Concomitant]
     Indication: MYASTHENIA GRAVIS
     Route: 065
  3. PREDNISONE [Concomitant]
     Route: 065

REACTIONS (24)
  - ABSCESS [None]
  - ANXIETY [None]
  - BRAIN ABSCESS [None]
  - BRONCHIECTASIS [None]
  - CAPILLARY DISORDER [None]
  - CHRONIC RESPIRATORY FAILURE [None]
  - DEHYDRATION [None]
  - DIARRHOEA [None]
  - ENCEPHALOMALACIA [None]
  - HERPES ZOSTER [None]
  - MYASTHENIA GRAVIS [None]
  - MYCOBACTERIAL INFECTION [None]
  - NEUROMYOPATHY [None]
  - ORAL CANDIDIASIS [None]
  - OSTEOMYELITIS [None]
  - OSTEONECROSIS [None]
  - PETECHIAE [None]
  - PSEUDOMONAS INFECTION [None]
  - REFUSAL OF TREATMENT BY RELATIVE [None]
  - RESPIRATORY FAILURE [None]
  - SINUSITIS [None]
  - SKIN LACERATION [None]
  - STAPHYLOCOCCAL INFECTION [None]
  - URINARY TRACT INFECTION [None]
